APPROVED DRUG PRODUCT: CEFADROXIL
Active Ingredient: CEFADROXIL/CEFADROXIL HEMIHYDRATE
Strength: EQ 500MG BASE/5ML
Dosage Form/Route: FOR SUSPENSION;ORAL
Application: A065349 | Product #002 | TE Code: AB
Applicant: AUROBINDO PHARMA LTD
Approved: Apr 25, 2013 | RLD: No | RS: No | Type: RX